FAERS Safety Report 9537823 (Version 1)
Quarter: 2013Q3

REPORT INFORMATION
  Report Type: Spontaneous
  Country: NL (occurrence: NL)
  Receive Date: 20130919
  Receipt Date: 20130919
  Transmission Date: 20140515
  Serious: Yes (Hospitalization)
  Sender: FDA-Public Use
  Company Number: PHHY2013NL103902

PATIENT
  Age: 38 Year
  Sex: Female

DRUGS (1)
  1. RITALIN [Suspect]
     Indication: ATTENTION DEFICIT/HYPERACTIVITY DISORDER
     Dosage: 30 MG, 6 TIMES DAILY
     Dates: start: 2010

REACTIONS (4)
  - Raynaud^s phenomenon [Unknown]
  - Pain [Unknown]
  - Vascular occlusion [Unknown]
  - Vasospasm [Unknown]
